FAERS Safety Report 22186212 (Version 1)
Quarter: 2023Q2

REPORT INFORMATION
  Report Type: Spontaneous
  Country: ES (occurrence: ES)
  Receive Date: 20230407
  Receipt Date: 20230407
  Transmission Date: 20230721
  Serious: Yes (Hospitalization)
  Sender: FDA-Public Use
  Company Number: None

PATIENT
  Age: 35 Year
  Sex: Male
  Weight: 60 kg

DRUGS (5)
  1. VORICONAZOLE [Suspect]
     Active Substance: VORICONAZOLE
     Indication: Aspergillus infection
     Dosage: VORICONAZOL (2878A)
     Route: 065
     Dates: start: 20190411, end: 20190417
  2. VORICONAZOLE [Concomitant]
     Active Substance: VORICONAZOLE
     Indication: Aspergillus infection
     Dosage: VORICONAZOL (2878A),
     Dates: start: 20190418, end: 20190424
  3. VORICONAZOLE [Concomitant]
     Active Substance: VORICONAZOLE
     Dates: start: 201902, end: 20190411
  4. VORICONAZOLE [Concomitant]
     Active Substance: VORICONAZOLE
     Dates: start: 20190411, end: 20190417
  5. VORICONAZOLE [Concomitant]
     Active Substance: VORICONAZOLE
     Dates: start: 20190426, end: 20190506

REACTIONS (2)
  - Depressed level of consciousness [Recovered/Resolved]
  - Photopsia [Recovered/Resolved]

NARRATIVE: CASE EVENT DATE: 20190417
